FAERS Safety Report 21342038 (Version 1)
Quarter: 2022Q3

REPORT INFORMATION
  Report Type: Spontaneous
  Country: DE (occurrence: DE)
  Receive Date: 20220916
  Receipt Date: 20220916
  Transmission Date: 20221027
  Serious: Yes (Hospitalization)
  Sender: FDA-Public Use
  Company Number: DE-NOVARTISPH-NVSC2022DE208613

PATIENT
  Age: 83 Year
  Sex: Male
  Weight: 70 kg

DRUGS (1)
  1. PREDNISOLONE [Suspect]
     Active Substance: PREDNISOLONE
     Indication: Rheumatoid arthritis
     Dosage: 5 MG, 1.5-0-0-0
     Route: 048

REACTIONS (4)
  - COVID-19 [Unknown]
  - Dyspnoea [Unknown]
  - Pyrexia [Unknown]
  - Cough [Unknown]
